FAERS Safety Report 11596671 (Version 1)
Quarter: 2015Q4

REPORT INFORMATION
  Report Type: Spontaneous
  Country: US (occurrence: US)
  Receive Date: 20151006
  Receipt Date: 20151006
  Transmission Date: 20160304
  Serious: Yes (Death)
  Sender: FDA-Public Use
  Company Number: US-JAZZ-2015-US-015486

PATIENT
  Sex: Female

DRUGS (1)
  1. FAZACLO [Suspect]
     Active Substance: CLOZAPINE
     Dosage: 300-400 MG, QD
     Route: 048
     Dates: start: 20080909

REACTIONS (1)
  - Death [Fatal]
